FAERS Safety Report 7632311-0 (Version None)
Quarter: 2011Q3

REPORT INFORMATION
  Report Type: 
  Country: None (occurrence: None)
  Receive Date: 20110725
  Receipt Date: 20100817
  Transmission Date: 20111222
  Serious: No
  Sender: FDA-Public Use
  Company Number: US-BRISTOL-MYERS SQUIBB COMPANY-15209232

PATIENT
  Age: 85 Year
  Sex: Male
  Weight: 73 kg

DRUGS (14)
  1. UROXATRAL [Concomitant]
  2. COMBIGAN [Concomitant]
  3. PRESERVISION AREDS [Concomitant]
     Dosage: 2DF=2CAPS
  4. LISINOPRIL [Concomitant]
  5. LANOXIN [Concomitant]
  6. FENOFIBRATE [Concomitant]
  7. ANTIBIOTIC [Concomitant]
  8. COUMADIN [Suspect]
     Dosage: 1DF=2OR2.5MG
  9. FIBERCON [Concomitant]
     Dosage: 2DF=2TABLETS
  10. METOPROLOL TARTRATE [Concomitant]
  11. FUROSEMIDE [Concomitant]
  12. FOLIC ACID [Concomitant]
  13. TRAVATAN [Concomitant]
  14. ASCORBIC ACID [Concomitant]

REACTIONS (1)
  - BLOOD BLISTER [None]
